FAERS Safety Report 5118277-6 (Version None)
Quarter: 2006Q4

REPORT INFORMATION
  Report Type: 
  Country: None (occurrence: None)
  Receive Date: 20061002
  Receipt Date: 20060803
  Transmission Date: 20070319
  Serious: Yes (Other)
  Sender: FDA-Public Use
  Company Number: US-BRISTOL-MYERS SQUIBB COMPANY-13464912

PATIENT
  Age: 65 Year
  Sex: Female
  Weight: 76 kg

DRUGS (4)
  1. ORENCIA [Suspect]
     Indication: RHEUMATOID ARTHRITIS
     Dosage: LOT #MTN534A, EXP OCT-2007.
     Route: 042
     Dates: start: 20060515
  2. CALCIUM GLUCONATE [Concomitant]
  3. MULTIVITAMIN [Concomitant]
  4. MAGNESIUM [Concomitant]

REACTIONS (1)
  - BREAST CANCER [None]
